FAERS Safety Report 8614755 (Version 2)
Quarter: 2013Q3

REPORT INFORMATION
  Report Type: Spontaneous
  Country: BR (occurrence: BR)
  Receive Date: 20120614
  Receipt Date: 20130716
  Transmission Date: 20140515
  Serious: Yes (Death)
  Sender: FDA-Public Use
  Company Number: BR-ROCHE-1078059

PATIENT
  Age: 68 Year
  Sex: 0
  Weight: 68 kg

DRUGS (6)
  1. MABTHERA [Suspect]
     Indication: RHEUMATOID ARTHRITIS
     Route: 042
     Dates: start: 200708, end: 201008
  2. MABTHERA [Suspect]
     Indication: MIXED CONNECTIVE TISSUE DISEASE
  3. ACTEMRA [Suspect]
     Indication: RHEUMATOID ARTHRITIS
     Route: 042
     Dates: start: 201204, end: 201205
  4. ACTEMRA [Suspect]
     Indication: MIXED CONNECTIVE TISSUE DISEASE
  5. CYCLOPHOSPHAMIDE [Concomitant]
     Indication: RHEUMATOID ARTHRITIS
     Route: 042
     Dates: start: 200609, end: 201203
  6. CYCLOPHOSPHAMIDE [Concomitant]
     Indication: MIXED CONNECTIVE TISSUE DISEASE

REACTIONS (3)
  - Malignant neoplasm of unknown primary site [Fatal]
  - Pancreatic carcinoma [Fatal]
  - Metastases to liver [Fatal]
